FAERS Safety Report 21385494 (Version 1)
Quarter: 2022Q3

REPORT INFORMATION
  Report Type: Spontaneous
  Country: CN (occurrence: CN)
  Receive Date: 20220928
  Receipt Date: 20220928
  Transmission Date: 20221027
  Serious: Yes (Death)
  Sender: FDA-Public Use
  Company Number: CN-drreddys-LIT/CHN/22/0155143

PATIENT
  Age: 89 Year
  Sex: Male

DRUGS (10)
  1. CLOPIDOGREL [Suspect]
     Active Substance: CLOPIDOGREL BISULFATE
     Indication: Antiplatelet therapy
  2. CLOPIDOGREL [Suspect]
     Active Substance: CLOPIDOGREL BISULFATE
     Indication: Anticoagulant therapy
  3. DABIGATRAN [Interacting]
     Active Substance: DABIGATRAN
     Indication: Antiplatelet therapy
     Route: 048
  4. DABIGATRAN [Interacting]
     Active Substance: DABIGATRAN
     Indication: Anticoagulant therapy
  5. ASPIRIN [Interacting]
     Active Substance: ASPIRIN
     Indication: Antiplatelet therapy
  6. ASPIRIN [Interacting]
     Active Substance: ASPIRIN
     Indication: Anticoagulant therapy
  7. ENOXAPARIN [Suspect]
     Active Substance: ENOXAPARIN
     Indication: Antiplatelet therapy
  8. ENOXAPARIN [Suspect]
     Active Substance: ENOXAPARIN
     Indication: Anticoagulant therapy
  9. ACETAMINOPHEN [Suspect]
     Active Substance: ACETAMINOPHEN
     Indication: Antiplatelet therapy
  10. ACETAMINOPHEN [Suspect]
     Active Substance: ACETAMINOPHEN
     Indication: Anticoagulant therapy

REACTIONS (4)
  - Melaena [Fatal]
  - Haematemesis [Fatal]
  - Overdose [Unknown]
  - Medication error [Unknown]
